FAERS Safety Report 8007521-3 (Version None)
Quarter: 2011Q4

REPORT INFORMATION
  Report Type: 
  Country: None (occurrence: None)
  Receive Date: 20111227
  Receipt Date: 20111216
  Transmission Date: 20120403
  Serious: Yes (Other)
  Sender: FDA-Public Use
  Company Number: FR-UCBSA-041908

PATIENT
  Age: 51 Year
  Sex: Male
  Weight: 51.2 kg

DRUGS (5)
  1. KEPPRA [Suspect]
     Indication: POST-ANOXIC MYOCLONUS
     Dosage: 750 GM TWO TABLETS TWICE DAILY
     Route: 048
     Dates: start: 20101201, end: 20110226
  2. KEPPRA [Suspect]
     Dosage: 750 GM TWO TABLETS TWICE DAILY
     Route: 048
     Dates: start: 20101201, end: 20110226
  3. CLONAZEPAM [Concomitant]
     Indication: POST-ANOXIC MYOCLONUS
     Route: 048
     Dates: start: 20101201, end: 20110308
  4. CITALOPRAM [Concomitant]
     Indication: DEPRESSION
     Route: 048
     Dates: start: 20110221
  5. PAROXETINE HCL [Concomitant]
     Indication: DEPRESSION
     Route: 048
     Dates: start: 20101201, end: 20110221

REACTIONS (1)
  - MYALGIA [None]
